FAERS Safety Report 6035616-2 (Version None)
Quarter: 2009Q1

REPORT INFORMATION
  Report Type: 
  Country: None (occurrence: None)
  Receive Date: 20090113
  Receipt Date: 20090105
  Transmission Date: 20090719
  Serious: Yes (Other)
  Sender: FDA-Public Use
  Company Number: PHHY2008BR31601

PATIENT
  Sex: Female
  Weight: 50 kg

DRUGS (4)
  1. FORASEQ [Suspect]
     Indication: BRONCHITIS
     Dosage: UNK
  2. FORASEQ [Suspect]
     Dosage: UNK
  3. MIFLASONE [Suspect]
  4. EBASTEL [Suspect]
     Indication: HYPERSENSITIVITY
     Dosage: 1 TAB DAILY
     Dates: start: 20081209

REACTIONS (9)
  - COUGH [None]
  - FEELING ABNORMAL [None]
  - FORMICATION [None]
  - HAEMATOMA [None]
  - HEADACHE [None]
  - INSOMNIA [None]
  - PRURITUS [None]
  - RASH PRURITIC [None]
  - SWELLING FACE [None]
